FAERS Safety Report 9652849 (Version 1)
Quarter: 2013Q4

REPORT INFORMATION
  Report Type: Spontaneous
  Country: US (occurrence: None)
  Receive Date: 20131028
  Receipt Date: 20131028
  Transmission Date: 20140711
  Serious: Yes (Life-Threatening, Hospitalization, Disabling)
  Sender: FDA-Public Use
  Company Number: None

PATIENT
  Age: 42 Year
  Sex: Female

DRUGS (1)
  1. TAMOXIFEN [Suspect]
     Indication: BREAST CANCER
     Dates: start: 20101001, end: 20121123

REACTIONS (9)
  - Haemoglobin decreased [None]
  - Memory impairment [None]
  - Amnesia [None]
  - Confusional state [None]
  - Dizziness [None]
  - Dyspnoea [None]
  - Haemorrhage [None]
  - Apparent death [None]
  - Menorrhagia [None]
